FAERS Safety Report 15702357 (Version 1)
Quarter: 2018Q4

REPORT INFORMATION
  Report Type: Spontaneous
  Country: FR (occurrence: FR)
  Receive Date: 20181210
  Receipt Date: 20181210
  Transmission Date: 20190205
  Serious: Yes (Hospitalization)
  Sender: FDA-Public Use
  Company Number: FR-SUN PHARMACEUTICAL INDUSTRIES LTD-2018RR-193004

PATIENT
  Age: 21 Year
  Sex: Female

DRUGS (2)
  1. LAROXYL 40 MG/ML, SOLUTION BUVABLE [Suspect]
     Active Substance: AMITRIPTYLINE HYDROCHLORIDE
     Indication: POISONING DELIBERATE
     Dosage: IN TOTAL
     Route: 048
     Dates: start: 20181106, end: 20181106
  2. PARACETAMOL [Suspect]
     Active Substance: ACETAMINOPHEN
     Indication: POISONING DELIBERATE
     Dosage: ()
     Route: 048
     Dates: start: 20181106, end: 20181107

REACTIONS (2)
  - Nausea [Recovered/Resolved]
  - Tachycardia [Recovered/Resolved]

NARRATIVE: CASE EVENT DATE: 20181107
